FAERS Safety Report 4836633-8 (Version None)
Quarter: 2005Q4

REPORT INFORMATION
  Report Type: 
  Country: None (occurrence: None)
  Receive Date: 20051121
  Receipt Date: 20051114
  Transmission Date: 20060501
  Serious: Yes (Hospitalization)
  Sender: FDA-Public Use
  Company Number: 032-55

PATIENT
  Age: 69 Year
  Sex: Female
  Weight: 250 kg

DRUGS (8)
  1. TEVETEN [Suspect]
     Indication: HYPERTENSION
     Dosage: 600 MG QD PO
     Route: 048
     Dates: start: 20050101, end: 20050101
  2. AGGRENOX [Concomitant]
  3. LOPRESSOR [Concomitant]
  4. LASIX [Concomitant]
  5. SYNTHROID [Concomitant]
  6. PAXIL [Concomitant]
  7. AVANDIA [Concomitant]
  8. ALLOPURINOL [Concomitant]

REACTIONS (3)
  - BRONCHITIS [None]
  - LOSS OF CONSCIOUSNESS [None]
  - NAUSEA [None]
